FAERS Safety Report 21890928 (Version 1)
Quarter: 2023Q1

REPORT INFORMATION
  Report Type: Spontaneous
  Country: DE (occurrence: None)
  Receive Date: 20230120
  Receipt Date: 20230120
  Transmission Date: 20230418
  Serious: Yes (Life-Threatening)
  Sender: FDA-Public Use
  Company Number: 2023A013943

PATIENT
  Sex: Female

DRUGS (4)
  1. FULVESTRANT [Suspect]
     Active Substance: FULVESTRANT
     Indication: Breast cancer
     Dosage: UNK
     Route: 065
     Dates: start: 202209
  2. KISQALI [Suspect]
     Active Substance: RIBOCICLIB
     Indication: Breast cancer
     Dosage: 600 MG600.0MG UNKNOWN
     Route: 065
     Dates: start: 202209, end: 2022
  3. DENOSUMAB [Suspect]
     Active Substance: DENOSUMAB
     Indication: Breast cancer
     Dosage: UNK
     Route: 065
     Dates: start: 202209
  4. PALBOCICLIB [Suspect]
     Active Substance: PALBOCICLIB
     Indication: Product used for unknown indication
     Dosage: 75 MG75.0MG UNKNOWN
     Route: 065

REACTIONS (3)
  - Aspartate aminotransferase abnormal [Recovered/Resolved]
  - Hepatic enzyme increased [Recovered/Resolved]
  - Alanine aminotransferase abnormal [Recovered/Resolved]

NARRATIVE: CASE EVENT DATE: 20221017
